FAERS Safety Report 11876904 (Version 4)
Quarter: 2016Q2

REPORT INFORMATION
  Report Type: Spontaneous
  Country: TW (occurrence: TW)
  Receive Date: 20151229
  Receipt Date: 20160404
  Transmission Date: 20160815
  Serious: Yes (Hospitalization, Other)
  Sender: FDA-Public Use
  Company Number: TW-ALEXION PHARMACEUTICALS INC-A201501757

PATIENT
  Age: 6 Year
  Sex: Male
  Weight: 20.2 kg

DRUGS (10)
  1. TRICHLORMETHIAZIDE [Concomitant]
     Active Substance: TRICHLORMETHIAZIDE
     Indication: HYPERTENSION
     Dosage: UNK
     Route: 048
     Dates: start: 2013
  2. SOLIRIS [Suspect]
     Active Substance: ECULIZUMAB
     Dosage: 300 MG, SINGLE
     Route: 042
  3. PREDNISOLONE. [Suspect]
     Active Substance: PREDNISOLONE
     Indication: GLOMERULONEPHRITIS MEMBRANOPROLIFERATIVE
     Dosage: 2 MG/KG, QD
     Route: 065
     Dates: start: 2016
  4. LASIX [Concomitant]
     Active Substance: FUROSEMIDE
     Indication: HYPERTENSION
     Dosage: UNK
     Route: 048
     Dates: start: 2013
  5. SOLIRIS [Suspect]
     Active Substance: ECULIZUMAB
     Dosage: 300 MG, Q2W
     Route: 042
  6. PREDNISOLONE. [Suspect]
     Active Substance: PREDNISOLONE
     Dosage: 0.25 MG/KG, UNK
     Route: 065
     Dates: start: 2016
  7. SOLIRIS [Suspect]
     Active Substance: ECULIZUMAB
     Indication: HAEMOLYTIC URAEMIC SYNDROME
     Dosage: 600 MG, SINGLE
     Route: 042
     Dates: start: 20140820, end: 20140820
  8. SOLIRIS [Suspect]
     Active Substance: ECULIZUMAB
     Dosage: 600 MG, Q2W
     Route: 042
     Dates: start: 20150913
  9. CAPTOPRIL. [Concomitant]
     Active Substance: CAPTOPRIL
     Indication: HYPERTENSION
     Dosage: UNK
     Route: 048
     Dates: start: 20140921
  10. NORVASC [Concomitant]
     Active Substance: AMLODIPINE BESYLATE
     Indication: HYPERTENSION
     Dosage: UNK
     Route: 048
     Dates: start: 2013

REACTIONS (17)
  - Blood albumin decreased [Recovering/Resolving]
  - Oedema [Recovered/Resolved]
  - Weight increased [Not Recovered/Not Resolved]
  - Blood creatinine increased [Unknown]
  - Otitis media acute [Recovered/Resolved]
  - Glomerulonephritis membranoproliferative [Recovered/Resolved]
  - Pain in extremity [Not Recovered/Not Resolved]
  - Renal impairment [Not Recovered/Not Resolved]
  - Albuminuria [Unknown]
  - Bronchitis [Unknown]
  - Proteinuria [Not Recovered/Not Resolved]
  - Pulmonary oedema [Unknown]
  - Mycoplasma infection [Unknown]
  - Nephrotic syndrome [Unknown]
  - Influenza [Unknown]
  - Blood lactate dehydrogenase increased [Recovered/Resolved]
  - Malignant hypertension [Recovering/Resolving]

NARRATIVE: CASE EVENT DATE: 2015
